FAERS Safety Report 22540427 (Version 2)
Quarter: 2023Q4

REPORT INFORMATION
  Report Type: Spontaneous
  Country: BR (occurrence: BR)
  Receive Date: 20230609
  Receipt Date: 20231113
  Transmission Date: 20240109
  Serious: Yes (Other)
  Sender: FDA-Public Use
  Company Number: BR-Atnahs Limited-ATNAHS20230601698

PATIENT
  Age: 66 Year
  Sex: Female

DRUGS (5)
  1. VALIUM [Suspect]
     Active Substance: DIAZEPAM
     Indication: Panic disorder
     Route: 048
     Dates: start: 2013, end: 202304
  2. VALIUM [Suspect]
     Active Substance: DIAZEPAM
     Route: 060
  3. Exodus [Concomitant]
     Indication: Panic disorder
     Route: 048
     Dates: start: 2013
  4. Exodus [Concomitant]
  5. Generic Diazepam [Concomitant]
     Indication: Panic disorder
     Dosage: ONE TABLET A DAY, ON SOME DAYS SHE USES 2 TABLETS
     Route: 065

REACTIONS (4)
  - Drug dependence [Not Recovered/Not Resolved]
  - Drug withdrawal syndrome [Not Recovered/Not Resolved]
  - Product use in unapproved indication [Unknown]
  - Intentional product use issue [Unknown]
